FAERS Safety Report 10128401 (Version 1)
Quarter: 2014Q2

REPORT INFORMATION
  Report Type: Spontaneous
  Country: US (occurrence: US)
  Receive Date: 20140428
  Receipt Date: 20140428
  Transmission Date: 20141212
  Serious: No
  Sender: FDA-Public Use
  Company Number: US-BIOGENIDEC-2014BI037924

PATIENT
  Age: 38 Year
  Sex: Male
  Weight: 83 kg

DRUGS (5)
  1. TECFIDERA [Suspect]
     Indication: PRODUCT USED FOR UNKNOWN INDICATION
     Dates: start: 201308, end: 201403
  2. TECFIDERA [Suspect]
     Indication: PRODUCT USED FOR UNKNOWN INDICATION
     Route: 048
     Dates: start: 20130926
  3. OMEGA 3 [Concomitant]
     Dates: start: 20130923
  4. ZIJA [Concomitant]
  5. DICLOFENAC SODIUM [Concomitant]
     Route: 048
     Dates: start: 20130926

REACTIONS (17)
  - Hemiparesis [Not Recovered/Not Resolved]
  - Fatigue [Unknown]
  - Musculoskeletal stiffness [Unknown]
  - Multiple sclerosis [Unknown]
  - Depression [Unknown]
  - Irritability [Unknown]
  - Hypersomnia [Unknown]
  - Back pain [Unknown]
  - Somnolence [Unknown]
  - Temperature intolerance [Unknown]
  - Fall [Recovered/Resolved]
  - Paraesthesia [Unknown]
  - Pain in extremity [Unknown]
  - Drug ineffective [Unknown]
  - Flushing [Recovered/Resolved]
  - Multiple sclerosis relapse [Unknown]
  - Burning sensation [Unknown]
